FAERS Safety Report 6921793-5 (Version None)
Quarter: 2010Q3

REPORT INFORMATION
  Report Type: 
  Country: None (occurrence: None)
  Receive Date: 20100806
  Receipt Date: 20100420
  Transmission Date: 20110219
  Serious: No
  Sender: FDA-Public Use
  Company Number: 2010-05618

PATIENT
  Age: 60 Year
  Sex: Male

DRUGS (1)
  1. RAPAFLO [Suspect]
     Indication: PROSTATIC DISORDER
     Dosage: ORAL
     Route: 048

REACTIONS (1)
  - BLOOD GLUCOSE INCREASED [None]
